FAERS Safety Report 5404093-4 (Version None)
Quarter: 2007Q3

REPORT INFORMATION
  Report Type: 
  Country: None (occurrence: None)
  Receive Date: 20070731
  Receipt Date: 20070717
  Transmission Date: 20080115
  Serious: Yes (Hospitalization)
  Sender: FDA-Public Use
  Company Number: S05-USA-01946-01

PATIENT
  Age: 53 Year
  Sex: Female
  Weight: 67.6 kg

DRUGS (4)
  1. LEXAPRO [Suspect]
     Indication: DEPRESSION
     Dosage: 10 MG QD PO
     Route: 048
     Dates: start: 20041201, end: 20050101
  2. IRON SULFATETHIAMIN COMPOUND TAB [Concomitant]
  3. VITAMIN CAP [Concomitant]
  4. CALCIUM WITH VITAMIN D [Concomitant]

REACTIONS (12)
  - B-CELL LYMPHOMA [None]
  - BLOOD ALBUMIN DECREASED [None]
  - CENTRAL NERVOUS SYSTEM LYMPHOMA [None]
  - CONFUSIONAL STATE [None]
  - CONVULSION [None]
  - DRUG INEFFECTIVE [None]
  - DYSPNOEA [None]
  - MUSCULOSKELETAL STIFFNESS [None]
  - MYOGLOBIN BLOOD INCREASED [None]
  - NEUROTOXICITY [None]
  - SOMNOLENCE [None]
  - UNRESPONSIVE TO STIMULI [None]
